FAERS Safety Report 7655867-0 (Version None)
Quarter: 2011Q3

REPORT INFORMATION
  Report Type: 
  Country: None (occurrence: None)
  Receive Date: 20110729
  Receipt Date: 20110716
  Transmission Date: 20111222
  Serious: Yes (Hospitalization)
  Sender: FDA-Public Use
  Company Number: 2011AP001523

PATIENT
  Age: 13 Month
  Sex: Male

DRUGS (1)
  1. GLIPIZIDE [Suspect]
     Dosage: 50 MG;Q4H;

REACTIONS (4)
  - WRONG DRUG ADMINISTERED [None]
  - CONVULSION [None]
  - HYPOGLYCAEMIA [None]
  - TOXICITY TO VARIOUS AGENTS [None]
